FAERS Safety Report 6955237-4 (Version None)
Quarter: 2010Q3

REPORT INFORMATION
  Report Type: 
  Country: None (occurrence: None)
  Receive Date: 20100830
  Receipt Date: 20100816
  Transmission Date: 20110219
  Serious: Yes (Other)
  Sender: FDA-Public Use
  Company Number: US-ELI_LILLY_AND_COMPANY-US201008004748

PATIENT
  Age: 52 Year
  Sex: Male
  Weight: 111.11 kg

DRUGS (5)
  1. SYMBYAX [Suspect]
     Dosage: 3/25MG, UNKNOWN
     Route: 065
     Dates: start: 20091222, end: 20100101
  2. SYMBYAX [Suspect]
     Dosage: 6/50MG, UNKNOWN
     Route: 065
     Dates: start: 20100101, end: 20100216
  3. SYMBYAX [Suspect]
     Dosage: 12/50MG, UNKNOWN
     Route: 065
     Dates: start: 20100216, end: 20100331
  4. PROZAC [Suspect]
     Dosage: UNK, UNKNOWN
     Route: 065
     Dates: start: 20100331
  5. XANAX [Concomitant]
     Dosage: UNK, UNKNOWN
     Route: 065

REACTIONS (4)
  - AMNESIA [None]
  - DIABETES MELLITUS [None]
  - PNEUMONIA VIRAL [None]
  - WEIGHT INCREASED [None]
